FAERS Safety Report 7424376-6 (Version None)
Quarter: 2011Q2

REPORT INFORMATION
  Report Type: 
  Country: None (occurrence: None)
  Receive Date: 20110419
  Receipt Date: 20110224
  Transmission Date: 20111010
  Serious: No
  Sender: FDA-Public Use
  Company Number: US-BAYER-2011-018466

PATIENT
  Age: 83 Year
  Sex: Female
  Weight: 73 kg

DRUGS (4)
  1. BETA BLOCKING AGENTS [Concomitant]
  2. LISINOPRIL [Concomitant]
  3. CHOLESTEROL [Concomitant]
  4. ALEVE (CAPLET) [Suspect]
     Indication: ARTHRALGIA
     Dosage: 2 DF, BID
     Route: 048

REACTIONS (1)
  - PAIN [None]
